FAERS Safety Report 20463136 (Version 1)
Quarter: 2022Q1

REPORT INFORMATION
  Report Type: Spontaneous
  Country: US (occurrence: US)
  Receive Date: 20220211
  Receipt Date: 20220211
  Transmission Date: 20220423
  Serious: No
  Sender: FDA-Public Use
  Company Number: US-PERRIGO-21US028703

PATIENT

DRUGS (3)
  1. NAPROXEN SODIUM [Suspect]
     Active Substance: NAPROXEN SODIUM
     Indication: Toothache
     Dosage: 220 TO 440 MG, UNKNOWN
     Route: 048
     Dates: start: 202109
  2. ACETAMINOPHEN\METHOCARBAMOL [Concomitant]
     Active Substance: ACETAMINOPHEN\METHOCARBAMOL
     Indication: Toothache
     Dosage: UNK
     Route: 065
     Dates: start: 202109
  3. ADVIL                              /00044201/ [Concomitant]
     Indication: Toothache
     Dosage: UNK
     Route: 065
     Dates: start: 202109

REACTIONS (1)
  - Drug ineffective [Unknown]

NARRATIVE: CASE EVENT DATE: 20210901
